FAERS Safety Report 6914835-4 (Version None)
Quarter: 2010Q3

REPORT INFORMATION
  Report Type: 
  Country: None (occurrence: None)
  Receive Date: 20100809
  Receipt Date: 20100719
  Transmission Date: 20110219
  Serious: Yes (Hospitalization, Other)
  Sender: FDA-Public Use
  Company Number: US-ELI_LILLY_AND_COMPANY-US201007001004

PATIENT
  Sex: Male
  Weight: 72.562 kg

DRUGS (10)
  1. FORTEO [Suspect]
     Indication: OSTEOPOROSIS
     Dosage: 20 UG, DAILY (1/D)
     Dates: start: 20100421
  2. PROPRANOLOL [Concomitant]
     Dosage: UNK, 2/D
  3. DILTIAZEM [Concomitant]
     Dosage: 30 MG, 2/D
  4. PROTONIX [Concomitant]
     Dosage: 40 MG, DAILY (1/D)
  5. FLEXERIL [Concomitant]
     Dosage: 5 MG, 3/D
  6. OMNARIS [Concomitant]
     Dosage: 50 UG, DAILY (1/D)
     Route: 045
  7. FLOVENT [Concomitant]
     Dosage: UNK, 2/D
     Route: 055
  8. VITAMIN D [Concomitant]
     Dosage: 400 IU, DAILY (1/D)
  9. MULTI-VITAMIN [Concomitant]
     Dosage: UNK, DAILY (1/D)
  10. DEPAKOTE [Concomitant]
     Dosage: 125 MG, DAILY (1/D)

REACTIONS (3)
  - BALANCE DISORDER [None]
  - FALL [None]
  - HIP FRACTURE [None]
